FAERS Safety Report 7553902-1 (Version None)
Quarter: 2011Q2

REPORT INFORMATION
  Report Type: 
  Country: None (occurrence: None)
  Receive Date: 20110617
  Receipt Date: 20110603
  Transmission Date: 20111010
  Serious: Yes (Hospitalization)
  Sender: FDA-Public Use
  Company Number: AT-VERTEX PHARMACEUTICALS INC.-AE-2011-000259

PATIENT
  Sex: Female
  Weight: 65 kg

DRUGS (6)
  1. COPEGUS [Suspect]
     Route: 048
     Dates: start: 20110511
  2. VX-950 [Suspect]
     Indication: HEPATITIS C
     Route: 048
     Dates: start: 20110316
  3. COPEGUS [Suspect]
     Route: 048
     Dates: start: 20110415, end: 20110429
  4. COPEGUS [Suspect]
     Route: 048
     Dates: start: 20110429, end: 20110511
  5. PEGASYS [Suspect]
     Indication: HEPATITIS C
     Route: 058
     Dates: start: 20110316
  6. COPEGUS [Suspect]
     Indication: HEPATITIS C
     Route: 048
     Dates: start: 20110316, end: 20110414

REACTIONS (2)
  - ANAEMIA [None]
  - PYREXIA [None]
